FAERS Safety Report 8482993-9 (Version None)
Quarter: 2012Q3

REPORT INFORMATION
  Report Type: 
  Country: None (occurrence: None)
  Receive Date: 20120702
  Receipt Date: 20120621
  Transmission Date: 20120928
  Serious: Yes (Hospitalization)
  Sender: FDA-Public Use
  Company Number: US-ASTRAZENECA-2010SE59286

PATIENT
  Age: 57 Year
  Sex: Female
  Weight: 73.5 kg

DRUGS (16)
  1. CRESTOR [Suspect]
     Route: 048
     Dates: start: 20100101
  2. COQ10 [Concomitant]
  3. CRESTOR [Suspect]
     Indication: BLOOD TRIGLYCERIDES
     Route: 048
     Dates: start: 20100201
  4. CRESTOR [Suspect]
     Route: 048
     Dates: start: 20100101
  5. ASCORBIC ACID [Concomitant]
  6. CRESTOR [Suspect]
     Route: 048
     Dates: start: 20100101
  7. FISH OIL [Concomitant]
  8. CRESTOR [Suspect]
     Route: 048
     Dates: start: 20100101, end: 20101201
  9. VITAMIN D [Concomitant]
  10. CRESTOR [Suspect]
     Indication: HYPERCHOLESTEROLAEMIA
     Route: 048
     Dates: start: 20100201
  11. CRESTOR [Suspect]
     Route: 048
     Dates: start: 20100101, end: 20101201
  12. CRESTOR [Suspect]
     Route: 048
     Dates: start: 20120605, end: 20120619
  13. NEURONTIN [Concomitant]
  14. CRESTOR [Suspect]
     Route: 048
     Dates: start: 20120605, end: 20120619
  15. SYNTHROID [Concomitant]
  16. CRESTOR [Suspect]
     Route: 048
     Dates: start: 20100101

REACTIONS (21)
  - HYPOKINESIA [None]
  - POLLAKIURIA [None]
  - MUSCULOSKELETAL PAIN [None]
  - NECK PAIN [None]
  - GASTROOESOPHAGEAL REFLUX DISEASE [None]
  - MUSCULOSKELETAL DISORDER [None]
  - IMPAIRED DRIVING ABILITY [None]
  - FATIGUE [None]
  - PAIN IN EXTREMITY [None]
  - PAIN [None]
  - INTENTIONAL DRUG MISUSE [None]
  - HEADACHE [None]
  - CHEST PAIN [None]
  - AGRAPHIA [None]
  - SLEEP APNOEA SYNDROME [None]
  - NAUSEA [None]
  - OEDEMA PERIPHERAL [None]
  - ABDOMINAL PAIN UPPER [None]
  - BACK PAIN [None]
  - DECREASED APPETITE [None]
  - FIBROMYALGIA [None]
